FAERS Safety Report 5576886-4 (Version None)
Quarter: 2007Q4

REPORT INFORMATION
  Report Type: 
  Country: None (occurrence: None)
  Receive Date: 20071228
  Receipt Date: 20071218
  Transmission Date: 20080405
  Serious: Yes (Hospitalization, Other)
  Sender: FDA-Public Use
  Company Number: GB-RANBAXY-2006RR-03433

PATIENT

DRUGS (1)
  1. IBUPROFEN [Suspect]
     Dosage: 8 G, UNK
     Route: 048

REACTIONS (5)
  - AMNIOTIC FLUID VOLUME DECREASED [None]
  - COAGULATION TIME SHORTENED [None]
  - OVERDOSE [None]
  - PLATELET AGGREGATION DECREASED [None]
  - PLATELET FUNCTION TEST ABNORMAL [None]
